FAERS Safety Report 14448124 (Version 2)
Quarter: 2018Q1

REPORT INFORMATION
  Report Type: Report from Study
  Country: MX (occurrence: MX)
  Receive Date: 20180126
  Receipt Date: 20180215
  Transmission Date: 20180509
  Serious: Yes (Other)
  Sender: FDA-Public Use
  Company Number: PHHY2018MX012018

PATIENT
  Age: 67 Year
  Sex: Female
  Weight: 56 kg

DRUGS (18)
  1. EYE DROPS [Concomitant]
     Active Substance: UNSPECIFIED INGREDIENT
     Indication: PRODUCT USED FOR UNKNOWN INDICATION
     Route: 065
  2. ESCITALOPRAM [Concomitant]
     Active Substance: ESCITALOPRAM OXALATE
     Indication: PRODUCT USED FOR UNKNOWN INDICATION
     Route: 065
  3. LANOXIN [Concomitant]
     Active Substance: DIGOXIN
     Indication: PRODUCT USED FOR UNKNOWN INDICATION
     Dosage: 1 DF, QD (FROM MONDAY TO FRIDAY) (APPROXIMATELY 20 YEARS AGO)
     Route: 065
  4. DILATREND [Concomitant]
     Active Substance: CARVEDILOL
     Indication: ARRHYTHMIA
     Dosage: 0.25 DF, QD (FROM MONDAY TO FRIDAY) (20 YEARS)
     Route: 048
  5. TAFIL [Concomitant]
     Active Substance: ALPRAZOLAM
     Indication: CARDIAC DISORDER
     Dosage: 0.50 MG, QD (20 YEARS AGO)
     Route: 048
  6. LIPITOR [Concomitant]
     Active Substance: ATORVASTATIN CALCIUM
     Indication: PRODUCT USED FOR UNKNOWN INDICATION
     Route: 065
  7. ASPIRIN. [Concomitant]
     Active Substance: ASPIRIN
     Indication: PRODUCT USED FOR UNKNOWN INDICATION
     Route: 065
  8. SINTROM [Suspect]
     Active Substance: ACENOCOUMAROL
     Dosage: 0.25 DF, QD (TUESDAY AND THURSDAY)
     Route: 065
  9. ATORVASTATIN [Suspect]
     Active Substance: ATORVASTATIN
     Indication: PRODUCT USED FOR UNKNOWN INDICATION
     Dosage: 1 DF, QD (20 YEARS)
     Route: 065
  10. METFORMIN [Concomitant]
     Active Substance: METFORMIN HYDROCHLORIDE
     Indication: PRODUCT USED FOR UNKNOWN INDICATION
     Route: 065
  11. ALDACTONE [Concomitant]
     Active Substance: SPIRONOLACTONE
     Indication: PRODUCT USED FOR UNKNOWN INDICATION
     Route: 065
  12. SPIRONOLACTONE. [Concomitant]
     Active Substance: SPIRONOLACTONE
     Indication: PRODUCT USED FOR UNKNOWN INDICATION
     Route: 065
  13. DILAPRES [Concomitant]
     Indication: PRODUCT USED FOR UNKNOWN INDICATION
     Route: 065
  14. SINTROM [Suspect]
     Active Substance: ACENOCOUMAROL
     Indication: COAGULOPATHY
     Dosage: 0.5 DF, QOD (20 YEARS AGO MONDAY, WEDNESDAY AND FRIDAY)
     Route: 048
  15. CORDARONE [Concomitant]
     Active Substance: AMIODARONE HYDROCHLORIDE
     Indication: ARRHYTHMIA
     Dosage: UNK (APPROXIMATELY 20 YEARS AGO)
     Route: 065
  16. DIGOXIN. [Suspect]
     Active Substance: DIGOXIN
     Indication: PRODUCT USED FOR UNKNOWN INDICATION
     Dosage: 1 DF, QD (20 YEARS AGO)
     Route: 048
  17. CORDARONE [Suspect]
     Active Substance: AMIODARONE HYDROCHLORIDE
     Indication: ARRHYTHMIA
     Dosage: 0.5 DF, QD (20 YEARS)
     Route: 048
  18. ASPIRIN PROTECT [Concomitant]
     Active Substance: ASPIRIN
     Indication: COAGULOPATHY
     Dosage: 1 DF, QD (20 YEARS)
     Route: 048

REACTIONS (10)
  - Hyperthyroidism [Unknown]
  - Glaucoma [Unknown]
  - Antiphospholipid syndrome [Unknown]
  - Weight decreased [Unknown]
  - Cardiac failure [Unknown]
  - Wrong technique in product usage process [Unknown]
  - Diabetes mellitus [Unknown]
  - Thrombosis [Unknown]
  - Vertigo [Unknown]
  - Infarction [Unknown]

NARRATIVE: CASE EVENT DATE: 201702
